FAERS Safety Report 25035070 (Version 1)
Quarter: 2025Q1

REPORT INFORMATION
  Report Type: Spontaneous
  Country: US (occurrence: US)
  Receive Date: 20250304
  Receipt Date: 20250304
  Transmission Date: 20250408
  Serious: No
  Sender: CELLTRION
  Company Number: US-CELLTRION INC.-2025US005688

PATIENT

DRUGS (1)
  1. YUFLYMA [Suspect]
     Active Substance: ADALIMUMAB-AATY
     Indication: Rheumatoid arthritis

REACTIONS (3)
  - Device malfunction [Unknown]
  - Accidental exposure to product [Unknown]
  - Exposure via skin contact [Unknown]
